FAERS Safety Report 25462711 (Version 1)
Quarter: 2025Q2

REPORT INFORMATION
  Report Type: Report from Study
  Country: KR (occurrence: KR)
  Receive Date: 20250620
  Receipt Date: 20250620
  Transmission Date: 20250717
  Serious: Yes (Hospitalization)
  Sender: EISAI
  Company Number: KR-EISAI-1689298

PATIENT
  Age: 77 Year
  Sex: Male
  Weight: 61.2 kg

DRUGS (18)
  1. ARICEPT [Suspect]
     Active Substance: DONEPEZIL HYDROCHLORIDE
     Indication: Product used for unknown indication
  2. CHOLINE ALFOSCERATE [Concomitant]
     Active Substance: CHOLINE ALFOSCERATE
     Dates: start: 20190307
  3. AMLODIPINE BESYLATE\OLMESARTAN MEDOXOMIL [Concomitant]
     Active Substance: AMLODIPINE BESYLATE\OLMESARTAN MEDOXOMIL
     Dates: start: 20190118
  4. PIRENOXINE [Concomitant]
     Active Substance: PIRENOXINE
     Dates: start: 20180703
  5. FLUCONAZOLE [Concomitant]
     Active Substance: FLUCONAZOLE
     Dates: start: 20181122, end: 20190206
  6. MUPIROCIN [Concomitant]
     Active Substance: MUPIROCIN
  7. MAGNESIUM OXIDE [Concomitant]
     Active Substance: MAGNESIUM OXIDE
     Indication: Constipation
     Dates: start: 20180927
  8. MELATONIN [Concomitant]
     Active Substance: MELATONIN
     Indication: Sleep disorder
     Dates: start: 20170728
  9. BROMFENAC SODIUM HYDRATE [Concomitant]
     Dates: start: 20190425
  10. PREDNISOLONE ACETATE [Concomitant]
     Active Substance: PREDNISOLONE ACETATE
     Dates: start: 20190425, end: 20190502
  11. TIANEPTINE SODIUM [Concomitant]
     Active Substance: TIANEPTINE SODIUM
     Dates: start: 20180330
  12. LIDOCAINE HYDROCHLORIDE [Concomitant]
     Active Substance: LIDOCAINE HYDROCHLORIDE
     Dates: start: 20190425, end: 20190425
  13. DIAZEPAM [Concomitant]
     Active Substance: DIAZEPAM
     Dates: start: 20190425, end: 20190425
  14. PELUBIPROFEN [Concomitant]
     Active Substance: PELUBIPROFEN
     Dates: start: 20190425, end: 20190425
  15. RANITIDINE HYDROCHLORIDE/SUCRALFATE HYDRATE/TRIPOTASSIUM BUSMUTH DICIT [Concomitant]
     Dates: start: 20190425, end: 20190425
  16. TESTOSTERONE UNDECANOATE [Concomitant]
     Active Substance: TESTOSTERONE UNDECANOATE
     Dates: start: 20181019, end: 20190416
  17. MIRABEGRON [Concomitant]
     Active Substance: MIRABEGRON
     Dates: start: 20171103
  18. CILOSTAZOL [Concomitant]
     Active Substance: CILOSTAZOL
     Dates: start: 20190307

REACTIONS (1)
  - Inguinal hernia [Recovered/Resolved]

NARRATIVE: CASE EVENT DATE: 20190814
